FAERS Safety Report 4992253-6 (Version None)
Quarter: 2006Q2

REPORT INFORMATION
  Report Type: 
  Country: None (occurrence: None)
  Receive Date: 20060504
  Receipt Date: 20060425
  Transmission Date: 20061013
  Serious: Yes (Other)
  Sender: FDA-Public Use
  Company Number: US-ROCHE-446004

PATIENT
  Sex: Female
  Weight: 3.5 kg

DRUGS (1)
  1. ACCUTANE [Suspect]
     Indication: ACNE
     Dates: start: 19920615, end: 19920615

REACTIONS (8)
  - BACK PAIN [None]
  - CAESAREAN SECTION [None]
  - DIARRHOEA [None]
  - FATIGUE [None]
  - INFANT [None]
  - NO ADVERSE EFFECT [None]
  - SINUSITIS [None]
  - VAGINAL HAEMORRHAGE [None]
